FAERS Safety Report 8162942 (Version 2)
Quarter: 2013Q2

REPORT INFORMATION
  Report Type: Spontaneous
  Country: US (occurrence: None)
  Receive Date: 20110901
  Receipt Date: 20121016
  Transmission Date: 20140414
  Serious: Yes (Hospitalization)
  Sender: FDA-Public Use
  Company Number: GAM-021-11-US

PATIENT
  Age: 59 Year
  Sex: Male

DRUGS (17)
  1. OCTAGAM 5% (INTRAVENOUS IMMUNE GLOBULIN, OCTAPHARMA) [Suspect]
     Indication: HYPOGAMMAGLOBULINAEMIA
     Dosage: 1X 3 / WEEKS
     Route: 042
     Dates: start: 20100723, end: 20100723
  2. ACYCLOVIR [Concomitant]
  3. TESTOSTERONE [Concomitant]
  4. DULOXETINE [Concomitant]
  5. EZETIMIBE [Concomitant]
  6. FENOFIBRATE [Concomitant]
  7. METOCLOPRAMIDE [Concomitant]
  8. METOPROLOL [Concomitant]
  9. OLMESARTAN [Concomitant]
  10. OMEPRAZOLE [Concomitant]
  11. OXYBUTYNIN [Concomitant]
  12. POTASSIUM CHLORIDE [Concomitant]
  13. RANITIDINE [Concomitant]
  14. ROSUVASTATIN [Concomitant]
  15. TAMSULOSIN [Concomitant]
  16. HYDROCHLOROTHIAZIDE\TRIAMTERENE [Concomitant]
  17. TRIAMCINOLONE [Concomitant]

REACTIONS (2)
  - CEREBROVASCULAR ACCIDENT [None]
  - Embolic stroke [None]
